FAERS Safety Report 8218835-6 (Version None)
Quarter: 2012Q1

REPORT INFORMATION
  Report Type: 
  Country: None (occurrence: None)
  Receive Date: 20120306
  Receipt Date: 20110518
  Transmission Date: 20120608
  Serious: Yes (Hospitalization)
  Sender: FDA-Public Use
  Company Number: US-006203

PATIENT
  Age: 53 Year
  Sex: Female
  Weight: 72.7 kg

DRUGS (5)
  1. ISOVUE-300 [Suspect]
     Indication: COMPUTERISED TOMOGRAM
     Dosage: 100ML ONCE INTRAVENOUS (NOT OTHERWISE SPECIFIED)
     Route: 042
     Dates: start: 20110503, end: 20110503
  2. ISOVUE-300 [Suspect]
     Indication: LUNG NEOPLASM MALIGNANT
     Dosage: 100ML ONCE INTRAVENOUS (NOT OTHERWISE SPECIFIED)
     Route: 042
     Dates: start: 20110503, end: 20110503
  3. ASPIRIN [Concomitant]
  4. COMBIVENT INHALER (IPRATROPIUM BROMIDE; SALBUTAMOL SULFATE) [Concomitant]
  5. ADVAIR DISKUS (FLUTICASONE PROPIONATE; SALMETEROL) [Concomitant]

REACTIONS (6)
  - DYSPNOEA [None]
  - RASH ERYTHEMATOUS [None]
  - BURNING SENSATION [None]
  - WHEEZING [None]
  - SNEEZING [None]
  - MYOCARDIAL INFARCTION [None]
